FAERS Safety Report 11435004 (Version 1)
Quarter: 2015Q3

REPORT INFORMATION
  Report Type: Spontaneous
  Country: NZ (occurrence: NZ)
  Receive Date: 20150831
  Receipt Date: 20150831
  Transmission Date: 20151125
  Serious: Yes (Other)
  Sender: FDA-Public Use
  Company Number: NZ-MYLANLABS-2015M1028159

PATIENT

DRUGS (1)
  1. PROCHLORPERAZINE. [Suspect]
     Active Substance: PROCHLORPERAZINE
     Indication: MENIERE^S DISEASE

REACTIONS (3)
  - Cheilitis [Recovered/Resolved]
  - Stomatitis [Recovered/Resolved]
  - Drug eruption [Recovered/Resolved]
